FAERS Safety Report 8372412-5 (Version None)
Quarter: 2012Q2

REPORT INFORMATION
  Report Type: 
  Country: None (occurrence: None)
  Receive Date: 20120521
  Receipt Date: 20120510
  Transmission Date: 20120825
  Serious: Yes (Other)
  Sender: FDA-Public Use
  Company Number: BR-SANOFI-AVENTIS-2012SA033580

PATIENT
  Age: 74 Year
  Sex: Female
  Weight: 56 kg

DRUGS (9)
  1. METFORMIN HCL [Concomitant]
     Dosage: SINCE ABOUT 15 YEARS AGO
     Route: 048
  2. LANTUS [Suspect]
     Dosage: SINCE 4 YEARS AGO
     Route: 058
  3. VISKEN [Concomitant]
     Dosage: SINCE ABOUT 10 YEARS AGO
     Route: 048
  4. ALDACTONE [Concomitant]
     Indication: BLOOD PRESSURE
     Dosage: SINCE ABOUT 10 YEARS AGO
     Route: 048
  5. DIGOXIN [Concomitant]
     Dosage: SINCE ABOUT 10 YEARS AGO
     Route: 048
  6. AMITRIPTYLINE HCL [Concomitant]
     Indication: SEDATION
     Route: 048
  7. FERROUS SULFATE TAB [Concomitant]
     Dosage: SINCE ABIUT 28 MONTHS AGO
     Route: 048
  8. AMILORIDE HCL AND HYDROCHLOROTHIAZIDE [Concomitant]
     Dosage: SINCE ABOUT 10 YEARS AGO
     Route: 048
  9. TEGRETOL [Concomitant]
     Route: 048

REACTIONS (5)
  - HEPATIC CIRRHOSIS [None]
  - TREMOR [None]
  - CONFUSIONAL STATE [None]
  - HEPATIC ENCEPHALOPATHY [None]
  - SOMNOLENCE [None]
